FAERS Safety Report 17430430 (Version 1)
Quarter: 2020Q1

REPORT INFORMATION
  Report Type: Spontaneous
  Country: US (occurrence: US)
  Receive Date: 20200215
  Receipt Date: 20200215
  Transmission Date: 20200409
  Serious: No
  Sender: FDA-Public Use
  Company Number: None

PATIENT
  Age: 70 Year
  Sex: Female
  Weight: 62.1 kg

DRUGS (5)
  1. VIT. D [Concomitant]
  2. ZETIA [Suspect]
     Active Substance: EZETIMIBE
     Indication: BLOOD CHOLESTEROL INCREASED
     Dosage: ?          QUANTITY:1 TABLET(S);?
     Route: 048
     Dates: start: 20180820, end: 20200125
  3. PROBIOTICS [Concomitant]
     Active Substance: PROBIOTICS NOS
  4. OMEGA 3 [Concomitant]
     Active Substance: OMEGA-3 FATTY ACIDS
  5. GARLIC. [Concomitant]
     Active Substance: GARLIC

REACTIONS (1)
  - Anxiety [None]

NARRATIVE: CASE EVENT DATE: 20200125
